FAERS Safety Report 12657415 (Version 1)
Quarter: 2016Q3

REPORT INFORMATION
  Report Type: Spontaneous
  Country: US (occurrence: US)
  Receive Date: 20160816
  Receipt Date: 20160816
  Transmission Date: 20161109
  Serious: No
  Sender: FDA-Public Use
  Company Number: US-ENDO PHARMACEUTICALS INC.-2016-003239

PATIENT
  Age: 34 Year
  Sex: Male
  Weight: 79.45 kg

DRUGS (1)
  1. SUMAVEL DOSEPRO [Suspect]
     Active Substance: SUMATRIPTAN SUCCINATE
     Indication: MIGRAINE
     Dosage: INJECT INTO THIGH AT ONSET OF HEADACHE USE AS NEEDED
     Route: 065
     Dates: start: 2014

REACTIONS (1)
  - Drug ineffective [Unknown]

NARRATIVE: CASE EVENT DATE: 201602
